FAERS Safety Report 16215686 (Version 1)
Quarter: 2019Q2

REPORT INFORMATION
  Report Type: Spontaneous
  Country: US (occurrence: US)
  Receive Date: 20190419
  Receipt Date: 20190419
  Transmission Date: 20190711
  Serious: No
  Sender: FDA-Public Use
  Company Number: US-JNJFOC-20190335808

PATIENT

DRUGS (2)
  1. VISINE A MULTI-ACTION EYE ALLERGY RELIEF [Suspect]
     Active Substance: NAPHAZOLINE HYDROCHLORIDE\PHENIRAMINE MALEATE
     Indication: OCULAR HYPERAEMIA
     Dosage: ONE DROP IN IN LEFT EYE AND TWO IN THE RIGHT EYE
     Route: 047
  2. VISINE A MULTI-ACTION EYE ALLERGY RELIEF [Suspect]
     Active Substance: NAPHAZOLINE HYDROCHLORIDE\PHENIRAMINE MALEATE
     Indication: ABNORMAL SENSATION IN EYE
     Dosage: ONE DROP IN IN LEFT EYE AND TWO IN THE RIGHT EYE
     Route: 047

REACTIONS (2)
  - Product use in unapproved indication [Unknown]
  - Mydriasis [Unknown]
